FAERS Safety Report 10234153 (Version 1)
Quarter: 2014Q2

REPORT INFORMATION
  Report Type: Spontaneous
  Country: FR (occurrence: FR)
  Receive Date: 20140612
  Receipt Date: 20140612
  Transmission Date: 20141212
  Serious: Yes (Hospitalization)
  Sender: FDA-Public Use
  Company Number: FR-GLAXOSMITHKLINE-B0999328A

PATIENT
  Age: 80 Year
  Sex: Female

DRUGS (4)
  1. ZELITREX [Suspect]
     Indication: HERPES ZOSTER
     Dosage: 1G THREE TIMES PER DAY
     Route: 048
     Dates: start: 20140507, end: 20140510
  2. MEMANTINE [Concomitant]
     Indication: DEMENTIA ALZHEIMER^S TYPE
  3. PROZAC [Concomitant]
     Dates: start: 2012
  4. LERCANIDIPINE [Concomitant]

REACTIONS (6)
  - Renal failure acute [Recovered/Resolved]
  - Confusional state [Recovered/Resolved]
  - Balance disorder [Recovered/Resolved]
  - Speech disorder [Recovered/Resolved]
  - Gait disturbance [Recovered/Resolved]
  - Asthenia [Recovered/Resolved]
